FAERS Safety Report 4349252-7 (Version None)
Quarter: 2004Q2

REPORT INFORMATION
  Report Type: 
  Country: None (occurrence: None)
  Receive Date: 20040427
  Receipt Date: 20031008
  Transmission Date: 20050107
  Serious: Yes (Life-Threatening, Other)
  Sender: FDA-Public Use
  Company Number: 000664

PATIENT
  Age: 47 Year
  Sex: Female

DRUGS (4)
  1. ZEVALIN [Suspect]
     Indication: NON-HODGKIN'S LYMPHOMA
     Dosage: SINGLE, RITUXAN DOSE 1, INTRAVENOUS
     Route: 042
     Dates: start: 20021210, end: 20021210
  2. ZEVALIN [Suspect]
     Dosage: SINGLE, IN-[111] ZEVALIN, INTRAVENOUS
     Route: 042
     Dates: start: 20021210, end: 20021210
  3. ZEVALIN [Suspect]
     Dosage: SINGLE, RITUXAN DOSE 2, INTRAVENOUS
     Route: 042
     Dates: start: 20021217, end: 20021217
  4. ZEVALIN [Suspect]
     Dosage: 20.5 MCI, SINGLE, Y90 ZEVALIN, INTRAVENOUS
     Route: 042
     Dates: start: 20021217, end: 20021217

REACTIONS (1)
  - MYELODYSPLASTIC SYNDROME [None]
